FAERS Safety Report 9365918 (Version 1)
Quarter: 2013Q2

REPORT INFORMATION
  Report Type: Spontaneous
  Country: US (occurrence: US)
  Receive Date: 20130625
  Receipt Date: 20130625
  Transmission Date: 20140414
  Serious: No
  Sender: FDA-Public Use
  Company Number: US-MYLANLABS-2013S1010398

PATIENT
  Age: 66 Year
  Sex: Female
  Weight: 71.67 kg

DRUGS (2)
  1. NIFEDIPINE EXTENDED RELEASE [Suspect]
     Indication: BLOOD PRESSURE
     Route: 048
     Dates: start: 2011
  2. HCTZ [Concomitant]
     Indication: FLUID RETENTION
     Route: 048

REACTIONS (3)
  - Drug effect decreased [Not Recovered/Not Resolved]
  - Blood pressure increased [Not Recovered/Not Resolved]
  - Medication residue present [Not Recovered/Not Resolved]
